FAERS Safety Report 5868832-0 (Version None)
Quarter: 2008Q3

REPORT INFORMATION
  Report Type: 
  Country: None (occurrence: None)
  Receive Date: 20080902
  Receipt Date: 20080902
  Transmission Date: 20090109
  Serious: Yes (Hospitalization)
  Sender: FDA-Public Use
  Company Number: None

PATIENT
  Sex: Male
  Weight: 97.4 kg

DRUGS (14)
  1. PEMETREXED [Suspect]
     Indication: NON-SMALL CELL LUNG CANCER STAGE IV
     Dosage: 400MG/M2 Q2 WEEKS IV
     Route: 042
     Dates: start: 20080804
  2. GEMCITABINE [Suspect]
     Indication: NON-SMALL CELL LUNG CANCER STAGE IV
     Dosage: 1200MG/M2 Q2 WEEKS IV
     Route: 042
     Dates: start: 20080804
  3. BEVACIZUMAB [Suspect]
     Indication: NON-SMALL CELL LUNG CANCER STAGE IV
     Dosage: 10MG/KG Q2 WEEKS IV
     Route: 042
     Dates: start: 20080804
  4. ASCORBIC ACID [Concomitant]
  5. ISOSORBIDE [Concomitant]
  6. LIPITOR [Concomitant]
  7. FLOMAX [Concomitant]
  8. SEREVENT [Concomitant]
  9. PROTONIX [Concomitant]
  10. SYNTHROID [Concomitant]
  11. LASIX [Concomitant]
  12. LOPRESSOR [Concomitant]
  13. PLAVIX [Concomitant]
  14. ASPIRIN [Concomitant]

REACTIONS (3)
  - ABDOMINAL PAIN [None]
  - ASTHENIA [None]
  - PNEUMONIA [None]
